FAERS Safety Report 10023036 (Version 2)
Quarter: 2014Q1

REPORT INFORMATION
  Report Type: Spontaneous
  Country: US (occurrence: US)
  Receive Date: 20140319
  Receipt Date: 20140319
  Transmission Date: 20141002
  Serious: Yes (Disabling)
  Sender: FDA-Public Use
  Company Number: US-GE HEALTHCARE MEDICAL DIAGNOSTICS-OSCN-PR-0805S-0298

PATIENT
  Age: 50 Year
  Sex: Female

DRUGS (7)
  1. OMNISCAN [Suspect]
     Indication: RENAL ARTERY STENOSIS
     Route: 042
     Dates: start: 20031126, end: 20031126
  2. OMNISCAN [Suspect]
     Indication: PRODUCT USED FOR UNKNOWN INDICATION
     Route: 042
     Dates: start: 20031123, end: 20031123
  3. OMNISCAN [Suspect]
     Indication: ENCEPHALITIS
     Route: 042
     Dates: start: 20040628, end: 20040628
  4. OMNISCAN [Suspect]
     Indication: ENCEPHALITIS
     Route: 042
     Dates: start: 20040713, end: 20040713
  5. OMNISCAN [Suspect]
     Indication: PRODUCT USED FOR UNKNOWN INDICATION
     Route: 042
  6. PROHANCE [Suspect]
     Indication: PRODUCT USED FOR UNKNOWN INDICATION
     Route: 042
     Dates: start: 20020321, end: 20020321
  7. PROHANCE [Suspect]
     Indication: PRODUCT USED FOR UNKNOWN INDICATION
     Route: 042
     Dates: start: 20040408, end: 20040408

REACTIONS (1)
  - Nephrogenic systemic fibrosis [Not Recovered/Not Resolved]
